FAERS Safety Report 20468457 (Version 5)
Quarter: 2022Q3

REPORT INFORMATION
  Report Type: Report from Study
  Country: BR (occurrence: BR)
  Receive Date: 20220214
  Receipt Date: 20220709
  Transmission Date: 20221026
  Serious: Yes (Death, Hospitalization, Other)
  Sender: FDA-Public Use
  Company Number: BR-NOVARTISPH-NVSC2022BR032901

PATIENT
  Age: 76 Year
  Sex: Female

DRUGS (6)
  1. TRAVATAN [Suspect]
     Active Substance: TRAVOPROST
     Indication: Glaucoma
     Dosage: UNK (4 OR 5 YEARS AGO)
     Route: 065
  2. TRAVATAN [Suspect]
     Active Substance: TRAVOPROST
     Dosage: UNK
     Route: 065
  3. TRAVATAN [Suspect]
     Active Substance: TRAVOPROST
     Dosage: UNK, (START FROM APPROXIMATELY 2014)
     Route: 065
  4. TRAVATAN [Suspect]
     Active Substance: TRAVOPROST
     Dosage: UNK
     Route: 065
     Dates: start: 202203
  5. SIMBRINZA [Suspect]
     Active Substance: BRIMONIDINE TARTRATE\BRINZOLAMIDE
     Indication: Product used for unknown indication
     Dosage: (CONTINUOUS USE)
     Route: 065
  6. SIMBRINZA [Suspect]
     Active Substance: BRIMONIDINE TARTRATE\BRINZOLAMIDE
     Dosage: UNK
     Route: 065
     Dates: start: 202203

REACTIONS (20)
  - Cardiogenic shock [Fatal]
  - Septic shock [Fatal]
  - Urinary tract infection [Fatal]
  - Diabetes mellitus [Fatal]
  - Chronic kidney disease [Fatal]
  - Cardiomyopathy [Fatal]
  - Device related infection [Unknown]
  - Catheter site pain [Unknown]
  - Oxygen consumption decreased [Unknown]
  - Infection [Not Recovered/Not Resolved]
  - Erythema [Unknown]
  - Hypotension [Not Recovered/Not Resolved]
  - Coma [Unknown]
  - Renal neoplasm [Unknown]
  - Illness [Unknown]
  - Laboratory test abnormal [Unknown]
  - Wound [Unknown]
  - Cardiac disorder [Unknown]
  - Hypertension [Unknown]
  - Drug ineffective [Unknown]

NARRATIVE: CASE EVENT DATE: 20220511
